FAERS Safety Report 14757444 (Version 1)
Quarter: 2018Q2

REPORT INFORMATION
  Report Type: Spontaneous
  Country: US (occurrence: US)
  Receive Date: 20180409
  Receipt Date: 20180409
  Transmission Date: 20180711
  Serious: Yes (Life-Threatening, Hospitalization)
  Sender: FDA-Public Use
  Company Number: None

PATIENT
  Age: 47 Year
  Sex: Male
  Weight: 121.5 kg

DRUGS (2)
  1. HUMIRA [Suspect]
     Active Substance: ADALIMUMAB
     Indication: CROHN^S DISEASE
     Dosage: 1 INJECTION(S); EVERY OTHER WEEK; INJECTED INTO THIGH?
     Dates: start: 20161201, end: 20171211
  2. CIMZIA [Concomitant]
     Active Substance: CERTOLIZUMAB PEGOL

REACTIONS (5)
  - Gastrointestinal pain [None]
  - Weight increased [None]
  - Vomiting [None]
  - Inflammation [None]
  - Visual impairment [None]

NARRATIVE: CASE EVENT DATE: 20171213
